FAERS Safety Report 8732774 (Version 2)
Quarter: 2012Q4

REPORT INFORMATION
  Report Type: 
  Country: NL (occurrence: NL)
  Receive Date: 20120820
  Receipt Date: 20121003
  Transmission Date: 20130627
  Serious: Yes (Hospitalization)
  Sender: FDA-Public Use
  Company Number: NL-PFIZER INC-2012199833

PATIENT
  Age: 75 Year
  Sex: Female
  Weight: 57 kg

DRUGS (10)
  1. GENOTROPIN [Suspect]
     Indication: HYPOPITUITARISM
     Dosage: 0.3 mg, 1x/day, 7injections/week
     Route: 058
     Dates: start: 20030519
  2. LASILETTEN [Concomitant]
     Indication: SWEAT GLAND DISORDER
     Dosage: UNK
  3. SINASPRIL [Concomitant]
     Indication: EMBOLISM ARTERIAL
     Dosage: UNK
  4. SINASPRIL [Concomitant]
     Indication: THROMBOSIS
  5. CALCIUM-SANDOZ [Concomitant]
     Indication: OSTEOPOROSIS
     Dosage: UNK
  6. LEVOTHYROXINE [Concomitant]
     Indication: BLOOD THYROID STIMULATING HORMONE DECREASED
     Dosage: UNK
     Dates: start: 19861201
  7. LEVOTHYROXINE [Concomitant]
     Indication: PRIMARY HYPOTHYROIDISM
  8. PREDNISOLONE [Concomitant]
     Indication: BLOOD CORTICOTROPHIN DECREASED
     Dosage: UNK
     Dates: start: 19961201
  9. TEMESTA [Concomitant]
     Indication: SLEEP DISORDER
     Dosage: UNK
     Dates: start: 19950601
  10. PARLODEL [Concomitant]
     Indication: GALACTOSAEMIA
     Dosage: UNK
     Dates: start: 19960612

REACTIONS (1)
  - Diverticulitis [Recovered/Resolved]
